FAERS Safety Report 7294160-5 (Version None)
Quarter: 2011Q1

REPORT INFORMATION
  Report Type: 
  Country: None (occurrence: None)
  Receive Date: 20110215
  Receipt Date: 20110211
  Transmission Date: 20110831
  Serious: Yes (Hospitalization, Disabling, Other)
  Sender: FDA-Public Use
  Company Number: US-PFIZER INC-2010133907

PATIENT
  Sex: Female

DRUGS (3)
  1. OXYCODONE [Concomitant]
     Indication: SURGERY
     Dosage: UNK
     Dates: start: 20050101, end: 20090101
  2. CHANTIX [Suspect]
     Indication: CHRONIC OBSTRUCTIVE PULMONARY DISEASE
     Dosage: 1 MG, UNK
     Dates: start: 20071101, end: 20090105
  3. CHANTIX [Suspect]
     Dosage: UNK
     Dates: start: 20090418

REACTIONS (13)
  - SUICIDE ATTEMPT [None]
  - NECK PAIN [None]
  - EMOTIONAL DISTRESS [None]
  - BACK PAIN [None]
  - ROAD TRAFFIC ACCIDENT [None]
  - MENTAL DISORDER [None]
  - ABNORMAL BEHAVIOUR [None]
  - IMPAIRED DRIVING ABILITY [None]
  - LOSS OF CONSCIOUSNESS [None]
  - PAIN IN EXTREMITY [None]
  - DEPRESSION [None]
  - AGGRESSION [None]
  - ANXIETY [None]
